FAERS Safety Report 19984822 (Version 1)
Quarter: 2021Q4

REPORT INFORMATION
  Report Type: Spontaneous
  Country: HU (occurrence: HU)
  Receive Date: 20211022
  Receipt Date: 20211022
  Transmission Date: 20220303
  Serious: Yes (Other)
  Sender: FDA-Public Use
  Company Number: HU-ROCHE-2925813

PATIENT
  Sex: Female

DRUGS (5)
  1. RITUXIMAB-PVVR [Suspect]
     Active Substance: RITUXIMAB-PVVR
     Indication: Diffuse large B-cell lymphoma
     Route: 065
  2. DOXORUBICIN HYDROCHLORIDE [Suspect]
     Active Substance: DOXORUBICIN HYDROCHLORIDE
     Indication: Diffuse large B-cell lymphoma
     Route: 065
  3. VINCRISTINE [Suspect]
     Active Substance: VINCRISTINE
     Indication: Diffuse large B-cell lymphoma
     Route: 065
  4. PREDNISOLONE [Suspect]
     Active Substance: PREDNISOLONE
     Indication: Diffuse large B-cell lymphoma
     Route: 065
  5. CYCLOPHOSPHAMIDE [Suspect]
     Active Substance: CYCLOPHOSPHAMIDE
     Indication: Diffuse large B-cell lymphoma
     Route: 065

REACTIONS (3)
  - Ejection fraction decreased [Recovering/Resolving]
  - Cardiac failure [Recovering/Resolving]
  - Intracardiac thrombus [Recovering/Resolving]
